FAERS Safety Report 5695824-7 (Version None)
Quarter: 2008Q2

REPORT INFORMATION
  Report Type: 
  Country: None (occurrence: None)
  Receive Date: 20080407
  Receipt Date: 20080331
  Transmission Date: 20081010
  Serious: Yes (Other)
  Sender: FDA-Public Use
  Company Number: NZ-JNJFOC-20080400023

PATIENT
  Sex: Male
  Weight: 70.1 kg

DRUGS (11)
  1. DURAGESIC-100 [Suspect]
     Indication: DRUG USE FOR UNKNOWN INDICATION
     Route: 062
  2. VERAPAMIL [Concomitant]
     Route: 065
  3. FUROSEMIDE [Concomitant]
     Route: 065
  4. ATIVAN [Concomitant]
     Route: 065
  5. LAMOTRIGINE [Concomitant]
     Route: 065
  6. TEGRETOL [Concomitant]
     Route: 065
  7. LIPITOR [Concomitant]
     Route: 065
  8. ENALAPRIL MALEATE [Concomitant]
     Route: 065
  9. CARTIA XT [Concomitant]
     Route: 065
  10. FOSAMAX [Concomitant]
     Route: 065
  11. CARDIZEM [Concomitant]
     Route: 065

REACTIONS (6)
  - DIZZINESS [None]
  - NAUSEA [None]
  - PETIT MAL EPILEPSY [None]
  - POLLAKIURIA [None]
  - SOMNOLENCE [None]
  - UNEVALUABLE EVENT [None]
